FAERS Safety Report 10089680 (Version 1)
Quarter: 2014Q2

REPORT INFORMATION
  Report Type: Spontaneous
  Country: US (occurrence: US)
  Receive Date: 20140421
  Receipt Date: 20140421
  Transmission Date: 20141212
  Serious: No
  Sender: FDA-Public Use
  Company Number: US-PFIZER INC-2014108476

PATIENT
  Age: 52 Year
  Sex: Male

DRUGS (3)
  1. DILANTIN-125 [Suspect]
     Dosage: UNK
  2. KEPPRA [Suspect]
     Dosage: UNK
  3. TEGRETOL [Suspect]
     Dosage: UNK

REACTIONS (1)
  - Drug hypersensitivity [Unknown]
